FAERS Safety Report 10927679 (Version 3)
Quarter: 2016Q1

REPORT INFORMATION
  Report Type: Report from Study
  Country: CA (occurrence: CA)
  Receive Date: 20150319
  Receipt Date: 20160324
  Transmission Date: 20160525
  Serious: Yes (Death, Hospitalization, Other)
  Sender: FDA-Public Use
  Company Number: CA-ABBVIE-15K-028-1362320-00

PATIENT
  Age: 72 Year
  Sex: Male
  Weight: 96 kg

DRUGS (3)
  1. HUMIRA [Suspect]
     Active Substance: ADALIMUMAB
     Indication: PSORIASIS
     Route: 058
     Dates: start: 20111121
  2. ASPIRIN. [Concomitant]
     Active Substance: ASPIRIN
     Indication: PRODUCT USED FOR UNKNOWN INDICATION
  3. SPIRONOLACTONE. [Concomitant]
     Active Substance: SPIRONOLACTONE
     Indication: HYPERTENSION

REACTIONS (22)
  - Asthenia [Fatal]
  - Bronchial secretion retention [Fatal]
  - Cirrhosis alcoholic [Fatal]
  - Hypotension [Fatal]
  - Ascites [Fatal]
  - Pulmonary congestion [Fatal]
  - Rib fracture [Fatal]
  - Cardiomegaly [Fatal]
  - Haemothorax [Fatal]
  - Nasopharyngitis [Fatal]
  - Hepatic encephalopathy [Unknown]
  - Jaundice [Fatal]
  - Abdominal injury [Fatal]
  - Arteriosclerosis coronary artery [Fatal]
  - Contusion [Fatal]
  - Multiple organ dysfunction syndrome [Fatal]
  - Pleural effusion [Fatal]
  - Spinal column injury [Fatal]
  - Fall [Fatal]
  - Pulmonary haemorrhage [Fatal]
  - Ischaemic cardiomyopathy [Fatal]
  - Chronic kidney disease [Fatal]

NARRATIVE: CASE EVENT DATE: 20141224
